FAERS Safety Report 7382606-3 (Version None)
Quarter: 2011Q1

REPORT INFORMATION
  Report Type: 
  Country: None (occurrence: None)
  Receive Date: 20110329
  Receipt Date: 20110315
  Transmission Date: 20110831
  Serious: Yes (Other)
  Sender: FDA-Public Use
  Company Number: US-MYLANLABS-2011S1005583

PATIENT
  Age: 63 Year
  Sex: Female

DRUGS (6)
  1. HALOPERIDOL [Concomitant]
     Dosage: AT BEDTIME
     Route: 065
  2. FAMOTIDINE [Concomitant]
     Route: 065
  3. CLONIDINE [Concomitant]
     Dosage: 0.3MG PATCH WEEKLY
     Route: 065
  4. ASPIRIN [Concomitant]
     Route: 065
  5. CLOZAPINE [Suspect]
     Indication: SCHIZOPHRENIA, PARANOID TYPE
     Dosage: INITAL DOSAGE UNKNOWN; AT TIME OF ADR RECEIVING 200MG AT BEDTIME
     Route: 065
  6. BENZATROPINE [Concomitant]
     Dosage: AT BEDTIME
     Route: 065

REACTIONS (2)
  - CARDIOLIPIN ANTIBODY POSITIVE [None]
  - PULMONARY EMBOLISM [None]
